FAERS Safety Report 5750891-7 (Version None)
Quarter: 2008Q2

REPORT INFORMATION
  Report Type: 
  Country: None (occurrence: None)
  Receive Date: 20080528
  Receipt Date: 20080520
  Transmission Date: 20081010
  Serious: Yes (Other)
  Sender: FDA-Public Use
  Company Number: TW-ASTRAZENECA-2008AC01313

PATIENT
  Age: 57 Year
  Sex: Male

DRUGS (4)
  1. GEFITINIB [Suspect]
     Indication: LUNG NEOPLASM MALIGNANT
     Dates: start: 20060101, end: 20061122
  2. GEFITINIB [Suspect]
     Indication: ADENOCARCINOMA
     Dates: start: 20060101, end: 20061122
  3. RADIATION THERAPY (WHOLE BRAIN) [Suspect]
     Indication: METASTASES TO CENTRAL NERVOUS SYSTEM
     Dosage: 37.5 GY WITH 10 MV PHOTONS. DAILY FRACTION SIZE 2.5 GY 5 DAYS PER WEEK.
     Dates: start: 20061117, end: 20061208
  4. ERLOTINIB [Suspect]
     Indication: LUNG NEOPLASM MALIGNANT
     Dates: start: 20061122, end: 20070102

REACTIONS (2)
  - RADIATION SKIN INJURY [None]
  - SUBDURAL HAEMATOMA [None]
